FAERS Safety Report 9236847 (Version 1)
Quarter: 2013Q1

REPORT INFORMATION
  Report Type: Spontaneous
  Country: US (occurrence: None)
  Receive Date: 20121031
  Receipt Date: 20121031
  Transmission Date: 20140127
  Serious: Yes (Other)
  Sender: FDA-Public Use
  Company Number: PHEH2012US012031

PATIENT
  Age: 57 Year
  Sex: Male

DRUGS (10)
  1. GILENYA (FTY) CAPSULE, 0.5MG [Suspect]
     Indication: MULTIPLE SCLEROSIS
     Route: 048
     Dates: start: 20120301, end: 20120526
  2. KLONOPIN (CLONAZEPAM) (TABLETS) [Concomitant]
  3. ADVAIR (FLUTICASONE PROPIONATE SALMETEROL XINAFOATE)) [Concomitant]
  4. PROVENTIL (SALBUTAMOL SULFATE) [Concomitant]
  5. FLONASE (FLUTICASONE PROPIONATE) [Concomitant]
  6. ALLOPURINOL [Concomitant]
  7. MOBIC (MELOXICAM) [Concomitant]
  8. AMITRIPTYLINE (AMITRIPTYLINE) [Concomitant]
  9. LIMBITROL (AMITRIPTYLINE HYDROCHLORIDE, CHLORDIAZEPOXIDE) [Concomitant]
  10. CHLORDIAZEPOXIDE (CHLORDIAZEPOXIDE) [Concomitant]

REACTIONS (14)
  - Herpes zoster [None]
  - Haemoglobin decreased [None]
  - Confusional state [None]
  - Cognitive disorder [None]
  - Abdominal discomfort [None]
  - Abdominal pain upper [None]
  - Fatigue [None]
  - White blood cell count decreased [None]
  - Lymphocyte count decreased [None]
  - Diarrhoea [None]
  - Back pain [None]
  - T-lymphocyte count decreased [None]
  - Depression [None]
  - Mental impairment [None]
